FAERS Safety Report 20096146 (Version 3)
Quarter: 2022Q1

REPORT INFORMATION
  Report Type: Spontaneous
  Country: ES (occurrence: ES)
  Receive Date: 20211122
  Receipt Date: 20220119
  Transmission Date: 20220423
  Serious: Yes (Other)
  Sender: FDA-Public Use
  Company Number: ES-BAYER-2021-182837

PATIENT

DRUGS (2)
  1. EYLEA [Suspect]
     Active Substance: AFLIBERCEPT
     Indication: Age-related macular degeneration
     Dosage: TOTAL OF 31 EYLEA DOSES AND LAST DOSE PRIRO THE EVENT WAS RECEIVED ON 02-SEP-2021
     Dates: start: 20180808
  2. EYLEA [Concomitant]
     Active Substance: AFLIBERCEPT
     Indication: Age-related macular degeneration

REACTIONS (4)
  - Blindness [Unknown]
  - Retinal artery occlusion [Recovered/Resolved]
  - Intraocular pressure increased [Unknown]
  - Device use issue [Unknown]

NARRATIVE: CASE EVENT DATE: 20210708
